FAERS Safety Report 7450188-3 (Version None)
Quarter: 2011Q2

REPORT INFORMATION
  Report Type: 
  Country: None (occurrence: None)
  Receive Date: 20110422
  Receipt Date: 20110412
  Transmission Date: 20111010
  Serious: Yes (Other)
  Sender: FDA-Public Use
  Company Number: 1000020199

PATIENT
  Age: 44 Year
  Sex: Male

DRUGS (2)
  1. ESCITALOPRAM OXALATE [Suspect]
     Dosage: 20 MG (20 MG,1 IN 1 D), ORAL
     Route: 048
  2. ASPIRIN [Concomitant]

REACTIONS (2)
  - GRAND MAL CONVULSION [None]
  - TREMOR [None]
